FAERS Safety Report 21189970 (Version 13)
Quarter: 2023Q2

REPORT INFORMATION
  Report Type: Spontaneous
  Country: CO (occurrence: CO)
  Receive Date: 20220809
  Receipt Date: 20230418
  Transmission Date: 20230721
  Serious: Yes (Hospitalization, Other)
  Sender: FDA-Public Use
  Company Number: CO-GLAXOSMITHKLINE-CO2022AMR116286

PATIENT

DRUGS (3)
  1. BELIMUMAB [Suspect]
     Active Substance: BELIMUMAB
     Indication: Systemic lupus erythematosus
     Dosage: 640 MG, Z (640 MG/28 DAYS)
     Dates: start: 20200924
  2. BELIMUMAB [Suspect]
     Active Substance: BELIMUMAB
     Dosage: 400 MG, Z
  3. METHOTREXATE [Concomitant]
     Active Substance: METHOTREXATE
     Indication: Product used for unknown indication
     Dosage: UNK

REACTIONS (20)
  - Post procedural haemorrhage [Recovered/Resolved]
  - Leukopenia [Recovered/Resolved]
  - Aspiration bone marrow [Recovered/Resolved]
  - Adverse drug reaction [Recovered/Resolved]
  - Hospitalisation [Recovering/Resolving]
  - Abdominal pain [Recovered/Resolved]
  - Inguinal hernia repair [Recovered/Resolved]
  - Dehiscence [Recovered/Resolved]
  - Bladder disorder [Recovered/Resolved]
  - Back pain [Recovered/Resolved]
  - Pollakiuria [Recovered/Resolved]
  - Oral herpes [Recovered/Resolved]
  - Herpes zoster [Unknown]
  - Feeling of despair [Recovered/Resolved]
  - Anxiety [Recovered/Resolved]
  - Aggression [Recovered/Resolved]
  - Disorientation [Recovered/Resolved]
  - Urinary tract infection [Unknown]
  - Ill-defined disorder [Unknown]
  - Inappropriate schedule of product administration [Unknown]

NARRATIVE: CASE EVENT DATE: 20220801
